FAERS Safety Report 8383289-6 (Version None)
Quarter: 2012Q2

REPORT INFORMATION
  Report Type: 
  Country: None (occurrence: None)
  Receive Date: 20120522
  Receipt Date: 20120508
  Transmission Date: 20120825
  Serious: Yes (Other)
  Sender: FDA-Public Use
  Company Number: TPA2012A02707

PATIENT
  Sex: Female

DRUGS (2)
  1. ACTOS [Suspect]
  2. LIPITOR [Concomitant]

REACTIONS (2)
  - DIABETES MELLITUS [None]
  - BLADDER CANCER [None]
